FAERS Safety Report 11327930 (Version 1)
Quarter: 2015Q3

REPORT INFORMATION
  Report Type: Spontaneous
  Country: US (occurrence: US)
  Receive Date: 20150731
  Receipt Date: 20150731
  Transmission Date: 20151125
  Serious: Yes (Other)
  Sender: FDA-Public Use
  Company Number: US-ASTRAZENECA-2015SE72978

PATIENT
  Age: 64 Year
  Sex: Female

DRUGS (3)
  1. METFORMIN [Concomitant]
     Active Substance: METFORMIN HYDROCHLORIDE
     Indication: TYPE 2 DIABETES MELLITUS
  2. BYDUREON [Suspect]
     Active Substance: EXENATIDE
     Indication: TYPE 2 DIABETES MELLITUS
     Route: 058
     Dates: start: 201310
  3. GLIPIZIDE XR [Concomitant]
     Indication: TYPE 2 DIABETES MELLITUS
     Dosage: EVERY DAY

REACTIONS (12)
  - Glycosylated haemoglobin increased [Unknown]
  - Pollakiuria [Not Recovered/Not Resolved]
  - Vomiting [Not Recovered/Not Resolved]
  - Blood glucose increased [Unknown]
  - Nausea [Not Recovered/Not Resolved]
  - Product quality issue [Unknown]
  - Cataract [Not Recovered/Not Resolved]
  - Dysuria [Unknown]
  - Injection site extravasation [Unknown]
  - Retinopathy [Not Recovered/Not Resolved]
  - Glaucoma [Unknown]
  - Underdose [Unknown]

NARRATIVE: CASE EVENT DATE: 2012
